FAERS Safety Report 9453571 (Version 1)
Quarter: 2013Q3

REPORT INFORMATION
  Report Type: Spontaneous
  Country: GB (occurrence: GB)
  Receive Date: 20130812
  Receipt Date: 20130812
  Transmission Date: 20140515
  Serious: Yes (Other)
  Sender: FDA-Public Use
  Company Number: ALCN2013GB004034

PATIENT
  Age: 56 Year
  Sex: 0

DRUGS (2)
  1. FLUORESCEIN SODIUM [Suspect]
     Indication: ANGIOGRAM
     Dosage: 4 ML, ONCE/SINGLE
     Route: 042
     Dates: start: 20130717, end: 20130717
  2. ICAPS [Concomitant]
     Indication: MACULAR DEGENERATION
     Route: 048

REACTIONS (2)
  - Blood pressure increased [Recovered/Resolved]
  - Urticaria [Recovered/Resolved]
